FAERS Safety Report 9656889 (Version 1)
Quarter: 2013Q4

REPORT INFORMATION
  Report Type: Spontaneous
  Country: US (occurrence: None)
  Receive Date: 20131029
  Receipt Date: 20131029
  Transmission Date: 20140711
  Serious: No
  Sender: FDA-Public Use
  Company Number: None

PATIENT
  Age: 54 Year
  Sex: Male
  Weight: 71.7 kg

DRUGS (1)
  1. AMPHOTERICIN B [Suspect]
     Dates: start: 20130901, end: 20130903

REACTIONS (4)
  - Feeling cold [None]
  - Pain [None]
  - Tremor [None]
  - Blood pressure increased [None]
